FAERS Safety Report 5118344-7 (Version None)
Quarter: 2006Q3

REPORT INFORMATION
  Report Type: 
  Country: None (occurrence: None)
  Receive Date: 20060927
  Receipt Date: 20060922
  Transmission Date: 20061208
  Serious: Yes (Hospitalization, Other)
  Sender: FDA-Public Use
  Company Number: 224812

PATIENT
  Age: 3 Year
  Sex: Male

DRUGS (1)
  1. NUTROPIN AQ [Suspect]
     Indication: DRUG USE FOR UNKNOWN INDICATION
     Dosage: 0.3 MG/K/W, 1/WEEK, SUBCUTANEOUS
     Route: 058
     Dates: start: 20051128, end: 20060417

REACTIONS (1)
  - LEUKAEMIA [None]
